FAERS Safety Report 5977525-0 (Version None)
Quarter: 2008Q4

REPORT INFORMATION
  Report Type: 
  Country: None (occurrence: None)
  Receive Date: 20081201
  Receipt Date: 20081201
  Transmission Date: 20090506
  Serious: Yes (Hospitalization)
  Sender: FDA-Public Use
  Company Number: None

PATIENT
  Age: 24 Year
  Sex: Female
  Weight: 72 kg

DRUGS (2)
  1. CIPROFLOXACIN [Suspect]
     Indication: OROPHARYNGEAL PAIN
     Dosage: OUTPATIENT USE
     Dates: start: 20081029, end: 20081031
  2. CIPROFLOXACIN [Suspect]
     Indication: SINUSITIS
     Dosage: OUTPATIENT USE
     Dates: start: 20081029, end: 20081031

REACTIONS (3)
  - DRUG PRESCRIBING ERROR [None]
  - MALAISE [None]
  - TORSADE DE POINTES [None]
